FAERS Safety Report 12774761 (Version 5)
Quarter: 2018Q2

REPORT INFORMATION
  Report Type: Report from Study
  Country: JP (occurrence: JP)
  Receive Date: 20160923
  Receipt Date: 20180503
  Transmission Date: 20180711
  Serious: Yes (Death, Life-Threatening, Other)
  Sender: FDA-Public Use
  Company Number: JP-INCYTE CORPORATION-2016IN005778

PATIENT

DRUGS (2)
  1. JAKAVI [Suspect]
     Active Substance: RUXOLITINIB
     Dosage: 12.5 MG, BID
     Route: 048
     Dates: start: 20160513
  2. JAKAVI [Suspect]
     Active Substance: RUXOLITINIB
     Indication: MYELOFIBROSIS
     Dosage: 10 MG, BID
     Route: 048
     Dates: start: 20151105, end: 20160512

REACTIONS (8)
  - Myelofibrosis [Fatal]
  - White blood cell count decreased [Fatal]
  - Diverticulitis [Recovered/Resolved with Sequelae]
  - Ascites [Recovering/Resolving]
  - Abdominal pain lower [Unknown]
  - Dysphagia [Unknown]
  - General physical health deterioration [Fatal]
  - Large intestine perforation [Unknown]

NARRATIVE: CASE EVENT DATE: 20160825
